FAERS Safety Report 12180453 (Version 1)
Quarter: 2016Q1

REPORT INFORMATION
  Report Type: Spontaneous
  Country: BR (occurrence: BR)
  Receive Date: 20160315
  Receipt Date: 20160315
  Transmission Date: 20160526
  Serious: Yes (Hospitalization)
  Sender: FDA-Public Use
  Company Number: BR-B.I. PHARMACEUTICALS,INC./RIDGEFIELD-2016-BI-15116BR

PATIENT
  Age: 38 Year
  Sex: Female
  Weight: 95 kg

DRUGS (3)
  1. LORITIL [Concomitant]
     Active Substance: LORATADINE
     Indication: BRONCHITIS CHRONIC
     Dosage: 40 MG
     Route: 048
     Dates: start: 2007
  2. ATROVENT [Suspect]
     Active Substance: IPRATROPIUM BROMIDE
     Indication: ASTHMA
     Dosage: 20 ML
     Route: 048
     Dates: start: 20160305
  3. PREDNISOLONA [Concomitant]
     Active Substance: PREDNISOLONE
     Indication: BRONCHITIS CHRONIC
     Dosage: 20 MG
     Route: 048
     Dates: start: 2007

REACTIONS (3)
  - Swelling face [Not Recovered/Not Resolved]
  - Tremor [Not Recovered/Not Resolved]
  - Headache [Not Recovered/Not Resolved]

NARRATIVE: CASE EVENT DATE: 20160306
